FAERS Safety Report 7776284-9 (Version None)
Quarter: 2011Q3

REPORT INFORMATION
  Report Type: 
  Country: None (occurrence: None)
  Receive Date: 20110921
  Receipt Date: 20110921
  Transmission Date: 20111222
  Serious: Yes (Death)
  Sender: FDA-Public Use
  Company Number: None

PATIENT
  Sex: Male
  Weight: 63.5 kg

DRUGS (4)
  1. DOCETAXEL [Suspect]
     Indication: RENAL CELL CARCINOMA
     Dosage: 75 MG/M2 Q 3 WEEKS IV
     Route: 042
     Dates: start: 20110701, end: 20110725
  2. OXYCONTIN [Concomitant]
  3. VICODIN [Concomitant]
  4. LAPATINIB [Suspect]
     Indication: RENAL CELL CARCINOMA
     Dosage: 1250 MG DAILY X 22 DAYS PO
     Route: 048
     Dates: start: 20110701, end: 20110809

REACTIONS (4)
  - BACK PAIN [None]
  - WEIGHT DECREASED [None]
  - HAEMOGLOBIN DECREASED [None]
  - HAEMATURIA [None]
